FAERS Safety Report 24216797 (Version 1)
Quarter: 2024Q3

REPORT INFORMATION
  Report Type: Spontaneous
  Country: IN (occurrence: IN)
  Receive Date: 20240816
  Receipt Date: 20240816
  Transmission Date: 20241016
  Serious: Yes (Other)
  Sender: ZYDUS PHARM
  Company Number: IN-CADILA HEALTHCARE LIMITED-IN-ZYDUS-110849

PATIENT

DRUGS (6)
  1. ACETAMINOPHEN [Suspect]
     Active Substance: ACETAMINOPHEN
     Indication: Pyrexia
     Dosage: 500 MILLIGRAM
     Route: 065
  2. ACETAMINOPHEN [Suspect]
     Active Substance: ACETAMINOPHEN
     Indication: Upper respiratory tract infection
  3. CEFPODOXIME\CLAVULANIC ACID [Suspect]
     Active Substance: CEFPODOXIME\CLAVULANIC ACID
     Indication: Pyrexia
     Dosage: UNK
     Route: 065
  4. CEFPODOXIME\CLAVULANIC ACID [Suspect]
     Active Substance: CEFPODOXIME\CLAVULANIC ACID
     Indication: Upper respiratory tract infection
  5. NIMESULIDE [Suspect]
     Active Substance: NIMESULIDE
     Indication: Pyrexia
     Dosage: 100 MILLIGRAM
     Route: 065
  6. NIMESULIDE [Suspect]
     Active Substance: NIMESULIDE
     Indication: Upper respiratory tract infection

REACTIONS (1)
  - Toxic epidermal necrolysis [Recovered/Resolved]
